FAERS Safety Report 22912887 (Version 3)
Quarter: 2024Q1

REPORT INFORMATION
  Report Type: Spontaneous
  Country: US (occurrence: US)
  Receive Date: 20230906
  Receipt Date: 20240212
  Transmission Date: 20240409
  Serious: Yes (Death, Other)
  Sender: FDA-Public Use
  Company Number: US-PFIZER INC-202300221547

PATIENT
  Age: 76 Year
  Sex: Female
  Weight: 99.34 kg

DRUGS (2)
  1. IBRANCE [Suspect]
     Active Substance: PALBOCICLIB
     Dosage: 21 DAY CYCLE, 7 DAYS OFF
  2. IBRANCE [Suspect]
     Active Substance: PALBOCICLIB
     Dosage: (TAKE 1 TABLET BY MOUTH DAILY FOR 21 DAY(S) ON THEN 7 DAY(S) OFF)
     Route: 048

REACTIONS (3)
  - Death [Fatal]
  - Dementia [Unknown]
  - Confusional state [Unknown]
